FAERS Safety Report 13724636 (Version 3)
Quarter: 2020Q4

REPORT INFORMATION
  Report Type: Report from Study
  Country: US (occurrence: US)
  Receive Date: 20170706
  Receipt Date: 20201124
  Transmission Date: 20210113
  Serious: Yes (Hospitalization)
  Sender: FDA-Public Use
  Company Number: US-CELGENEUS-USA-20170608277

PATIENT
  Age: 82 Year
  Sex: Female
  Weight: 57.66 kg

DRUGS (2)
  1. VIDAZA [Suspect]
     Active Substance: AZACITIDINE
     Indication: MYELODYSPLASTIC SYNDROME
     Dosage: 126 MILLIGRAM
     Route: 058
     Dates: start: 20161212, end: 20161218
  2. VIDAZA [Suspect]
     Active Substance: AZACITIDINE
     Dosage: 126 MILLIGRAM
     Route: 058
     Dates: start: 20170206, end: 20170224

REACTIONS (1)
  - Gastroenteritis [Recovered/Resolved]

NARRATIVE: CASE EVENT DATE: 20170101
